FAERS Safety Report 24897960 (Version 1)
Quarter: 2025Q1

REPORT INFORMATION
  Report Type: Report from Study
  Country: ZA (occurrence: ZA)
  Receive Date: 20250129
  Receipt Date: 20250129
  Transmission Date: 20250409
  Serious: Yes (Other)
  Sender: ROCHE
  Company Number: ZA-ROCHE-10000041882

PATIENT
  Sex: Female

DRUGS (4)
  1. OCREVUS [Suspect]
     Active Substance: OCRELIZUMAB
     Indication: Multiple sclerosis
     Dosage: 600MG EVERY 6 MONTHS
     Route: 040
     Dates: start: 20221129
  2. OCREVUS [Suspect]
     Active Substance: OCRELIZUMAB
     Route: 040
  3. ESOMEPRAZOLE [Concomitant]
     Active Substance: ESOMEPRAZOLE
     Route: 040
  4. SOLU-MEDROL [Concomitant]
     Active Substance: METHYLPREDNISOLONE SODIUM SUCCINATE
     Route: 040

REACTIONS (11)
  - Multiple sclerosis [Unknown]
  - Quadriparesis [Unknown]
  - Cerebellar ataxia [Unknown]
  - Expanded disability status scale score increased [Unknown]
  - Magnetic resonance imaging abnormal [Unknown]
  - Demyelination [Unknown]
  - Paranasal sinus mucosal hypertrophy [Unknown]
  - Optic neuritis [Unknown]
  - Multiple sclerosis [Unknown]
  - Magnetic resonance imaging abnormal [Unknown]
  - Nose deformity [Unknown]
